FAERS Safety Report 9045380 (Version 1)
Quarter: 2013Q1

REPORT INFORMATION
  Report Type: Report from Study
  Country: US (occurrence: US)
  Receive Date: 20130131
  Receipt Date: 20130131
  Transmission Date: 20140127
  Serious: No
  Sender: FDA-Public Use
  Company Number: US-ABBOTT-12P-163-1002274-00

PATIENT
  Age: 64 Year
  Sex: Female

DRUGS (15)
  1. HUMIRA [Suspect]
     Indication: PSORIATIC ARTHROPATHY
     Route: 058
     Dates: start: 201202
  2. HUMIRA [Suspect]
     Dates: start: 20120420
  3. HUMIRA [Suspect]
     Route: 058
  4. LISINOPRIL [Concomitant]
     Indication: HYPERTENSION
     Dosage: DAILY
  5. TOPROL [Concomitant]
     Indication: CARDIAC DISORDER
     Dosage: DAILY
  6. PROTONIX [Concomitant]
     Indication: PRODUCT USED FOR UNKNOWN INDICATION
     Dosage: DAILY
  7. GABAPENTIN [Concomitant]
     Indication: NEURALGIA
     Dosage: 1 IN AM, 2 IN PM
  8. GABAPENTIN [Concomitant]
     Indication: HERPES ZOSTER
  9. FOLIC ACID [Concomitant]
     Indication: PRODUCT USED FOR UNKNOWN INDICATION
     Dosage: DAILY
  10. HYDROCHLOROTHIAZIDE [Concomitant]
     Indication: PRODUCT USED FOR UNKNOWN INDICATION
     Dosage: DAILY
  11. BABY ASPIRIN [Concomitant]
     Indication: PRODUCT USED FOR UNKNOWN INDICATION
     Dosage: DAILY
  12. ISOSORB [Concomitant]
     Indication: CARDIAC DISORDER
     Dosage: DAILY
  13. CRESTOR [Concomitant]
     Indication: CARDIAC DISORDER
     Dosage: DAILY
  14. COUMADIN [Concomitant]
     Indication: PRODUCT USED FOR UNKNOWN INDICATION
     Dosage: DAILY EXCEPT FOR SATURDAY AND SUNDAY WHEN SHE TAKES 7.5MG
  15. VIT D [Concomitant]
     Indication: PRODUCT USED FOR UNKNOWN INDICATION
     Dosage: DAILY

REACTIONS (3)
  - Device malfunction [Unknown]
  - Nasopharyngitis [Unknown]
  - Drug dose omission [Unknown]
